FAERS Safety Report 6923363-1 (Version None)
Quarter: 2010Q3

REPORT INFORMATION
  Report Type: 
  Country: None (occurrence: None)
  Receive Date: 20100813
  Receipt Date: 20100810
  Transmission Date: 20110219
  Serious: Yes (Other)
  Sender: FDA-Public Use
  Company Number: US-MERCK-1006USA00387

PATIENT
  Age: 57 Year
  Sex: Female
  Weight: 77 kg

DRUGS (3)
  1. FOSAMAX [Suspect]
     Indication: OSTEOPOROSIS
     Route: 048
     Dates: start: 19990101, end: 20090101
  2. SYNTHROID [Concomitant]
     Route: 065
  3. SIMVASTATIN [Concomitant]
     Route: 048

REACTIONS (4)
  - BONE DENSITY DECREASED [None]
  - FALL [None]
  - SPINAL FRACTURE [None]
  - THORACIC VERTEBRAL FRACTURE [None]
